FAERS Safety Report 10714677 (Version 3)
Quarter: 2015Q4

REPORT INFORMATION
  Report Type: Report from Study
  Country: US (occurrence: US)
  Receive Date: 20150115
  Receipt Date: 20151026
  Transmission Date: 20160304
  Serious: Yes (Hospitalization)
  Sender: FDA-Public Use
  Company Number: US-MERCK-1406USA013514

PATIENT
  Age: 51 Year
  Sex: Male
  Weight: 62.4 kg

DRUGS (27)
  1. PREDNISONE. [Concomitant]
     Active Substance: PREDNISONE
     Dosage: UNK
     Route: 048
     Dates: start: 20130215
  2. COLCRYS [Concomitant]
     Active Substance: COLCHICINE
     Dosage: 0.6 MG, PRN
     Route: 048
     Dates: start: 201311
  3. MORPHINE [Concomitant]
     Active Substance: MORPHINE
     Indication: PAIN PROPHYLAXIS
  4. ULORIC [Concomitant]
     Active Substance: FEBUXOSTAT
     Indication: GOUT
     Dosage: 40 MG, QD
     Route: 048
     Dates: start: 201303
  5. LIDOCAINE HYDROCHLORIDE. [Concomitant]
     Active Substance: LIDOCAINE HYDROCHLORIDE
     Dosage: 2 OTHER, TID
     Route: 048
     Dates: start: 20131116
  6. PREGABALIN. [Concomitant]
     Active Substance: PREGABALIN
     Dosage: 40 MG, TID
     Route: 048
     Dates: start: 20140324
  7. BUDESONIDE. [Concomitant]
     Active Substance: BUDESONIDE
     Dosage: 6 MG, QD
     Route: 048
     Dates: start: 20140422
  8. PEMBROLIZUMAB. [Suspect]
     Active Substance: PEMBROLIZUMAB
     Indication: MALIGNANT MELANOMA
     Dosage: 10 MG/KG, QOW
     Route: 042
     Dates: start: 20130607, end: 20140505
  9. GAS-X [Concomitant]
     Active Substance: DIMETHICONE
     Indication: ROUTINE HEALTH MAINTENANCE
     Dosage: UNK
  10. MORPHINE [Concomitant]
     Active Substance: MORPHINE
     Indication: PROPHYLAXIS AGAINST DIARRHOEA
     Dosage: 15 MG, QID
     Route: 048
     Dates: start: 20131116
  11. OMEPRAZOLE. [Concomitant]
     Active Substance: OMEPRAZOLE
     Dosage: 20 MG, Q12H
     Route: 048
     Dates: start: 20140422
  12. INDOMETHACIN. [Concomitant]
     Active Substance: INDOMETHACIN
     Indication: GOUT
     Dosage: UNK
     Route: 048
  13. LOPERAMIDE HYDROCHLORIDE. [Concomitant]
     Active Substance: LOPERAMIDE HYDROCHLORIDE
     Indication: PROPHYLAXIS AGAINST DIARRHOEA
     Dosage: UNK
  14. MI-ACID [Concomitant]
     Dosage: 5 ML, TID
     Route: 048
     Dates: start: 20131116
  15. ONDANSETRON [Concomitant]
     Active Substance: ONDANSETRON
     Indication: PROPHYLAXIS OF NAUSEA AND VOMITING
     Dosage: 4 MG, PRN
     Route: 048
     Dates: start: 20140324
  16. MORPHINE [Concomitant]
     Active Substance: MORPHINE
     Indication: TUMOUR PAIN
     Dosage: 15 MG, TID
     Route: 048
     Dates: start: 201303
  17. OXYCODONE [Concomitant]
     Active Substance: OXYCODONE
     Indication: TUMOUR PAIN
     Dosage: 5 MG, PRN
     Route: 048
     Dates: start: 201303
  18. GASTROINTESTINAL PREPARATIONS (UNSPECIFIED) [Concomitant]
     Active Substance: UNSPECIFIED INGREDIENT
     Indication: CONSTIPATION PROPHYLAXIS
     Dosage: 50 MG, PRN
     Route: 048
     Dates: start: 20131006
  19. DONNATAL [Concomitant]
     Active Substance: ATROPINE SULFATE\HYOSCYAMINE SULFATE\PHENOBARBITAL\SCOPOLAMINE HYDROBROMIDE
     Dosage: 5 ML, TID
     Route: 048
     Dates: start: 20131116
  20. BENADRYL [Concomitant]
     Active Substance: DIPHENHYDRAMINE HYDROCHLORIDE
     Dosage: UNK
     Dates: start: 20130215
  21. COLCRYS [Concomitant]
     Active Substance: COLCHICINE
     Indication: GOUT
     Dosage: UNK
     Dates: start: 201211
  22. OXYCODONE [Concomitant]
     Active Substance: OXYCODONE
     Indication: PAIN PROPHYLAXIS
  23. PROBENECID. [Concomitant]
     Active Substance: PROBENECID
     Indication: GOUT
     Dosage: UNK
     Route: 048
  24. GASTROINTESTINAL PREPARATIONS (UNSPECIFIED) [Concomitant]
     Active Substance: UNSPECIFIED INGREDIENT
     Indication: CONSTIPATION
     Dosage: 8.6 MG, PRN
     Route: 048
     Dates: start: 20131006
  25. OMEPRAZOLE. [Concomitant]
     Active Substance: OMEPRAZOLE
     Dosage: UNK
  26. REFRESH TEARS [Concomitant]
     Active Substance: CARBOXYMETHYLCELLULOSE SODIUM
     Dosage: UNK
     Route: 047
  27. IMEDEEN TABLETS [Concomitant]
     Dosage: UNK
     Route: 048
     Dates: start: 20140104

REACTIONS (2)
  - Hypophysitis [Recovering/Resolving]
  - Pain [Recovering/Resolving]

NARRATIVE: CASE EVENT DATE: 20140620
